FAERS Safety Report 15155790 (Version 1)
Quarter: 2018Q3

REPORT INFORMATION
  Report Type: Spontaneous
  Country: DE (occurrence: DE)
  Receive Date: 20180717
  Receipt Date: 20180717
  Transmission Date: 20181010
  Serious: Yes (Other)
  Sender: FDA-Public Use
  Company Number: DE-US WORLDMEDS, LLC-STA_00019121

PATIENT
  Age: 78 Year
  Sex: Female
  Weight: 60 kg

DRUGS (10)
  1. MOTILIUM 10 [Concomitant]
     Active Substance: DOMPERIDONE
     Indication: PRODUCT USED FOR UNKNOWN INDICATION
  2. COMTESS [Concomitant]
     Active Substance: ENTACAPONE
     Indication: PARKINSON^S DISEASE
  3. LOSARTAN 25MG [Concomitant]
     Active Substance: LOSARTAN
  4. MADOPAR LT [Concomitant]
     Active Substance: BENSERAZIDE HYDROCHLORIDE\LEVODOPA
     Indication: PARKINSON^S DISEASE
     Dosage: AND IF NECESSARY
  5. PK MERZ 100 [Concomitant]
     Indication: PARKINSON^S DISEASE
     Dosage: 2X0.5 TBL DAILY
  6. OXYCODON 10MG [Concomitant]
  7. MADOPAR 125 [Concomitant]
     Indication: PARKINSON^S DISEASE
  8. APOMORPHINE HYDROCHLORIDE [Suspect]
     Active Substance: APOMORPHINE HYDROCHLORIDE
     Indication: PARKINSON^S DISEASE
     Dosage: NO BOLUS
     Route: 058
     Dates: start: 201410
  9. CARMEN [Concomitant]
     Active Substance: LERCANIDIPINE
  10. AZILECT [Concomitant]
     Active Substance: RASAGILINE MESYLATE
     Indication: PARKINSON^S DISEASE

REACTIONS (4)
  - Injection site nodule [Not Recovered/Not Resolved]
  - Apnoea [Recovered/Resolved]
  - Injection site necrosis [Not Recovered/Not Resolved]
  - Somnolence [Not Recovered/Not Resolved]

NARRATIVE: CASE EVENT DATE: 20141108
